FAERS Safety Report 17956343 (Version 7)
Quarter: 2022Q4

REPORT INFORMATION
  Report Type: Spontaneous
  Country: US (occurrence: US)
  Receive Date: 20200629
  Receipt Date: 20221012
  Transmission Date: 20230112
  Serious: Yes (Death, Other)
  Sender: FDA-Public Use
  Company Number: US-GILEAD-2020-0476225

PATIENT
  Age: 33 Year
  Sex: Female
  Weight: 49.887 kg

DRUGS (44)
  1. VIREAD [Suspect]
     Active Substance: TENOFOVIR DISOPROXIL FUMARATE
     Indication: HIV infection
     Dosage: UNK
     Route: 048
     Dates: start: 200903, end: 201603
  2. TRUVADA [Suspect]
     Active Substance: EMTRICITABINE\TENOFOVIR DISOPROXIL FUMARATE
     Indication: HIV infection
     Dosage: UNK
     Route: 048
     Dates: start: 2009, end: 2010
  3. TRUVADA [Suspect]
     Active Substance: EMTRICITABINE\TENOFOVIR DISOPROXIL FUMARATE
     Dosage: UNK
     Route: 048
     Dates: start: 20130409, end: 20131102
  4. TRUVADA [Suspect]
     Active Substance: EMTRICITABINE\TENOFOVIR DISOPROXIL FUMARATE
     Dosage: UNK
     Route: 048
     Dates: start: 20110104, end: 20131102
  5. COMPLERA [Suspect]
     Active Substance: EMTRICITABINE\RILPIVIRINE HYDROCHLORIDE\TENOFOVIR DISOPROXIL FUMARATE
     Indication: HIV infection
     Dosage: UNK
     Route: 048
     Dates: start: 2011
  6. COMPLERA [Suspect]
     Active Substance: EMTRICITABINE\RILPIVIRINE HYDROCHLORIDE\TENOFOVIR DISOPROXIL FUMARATE
     Dosage: UNK
     Route: 048
     Dates: start: 20140611, end: 20151214
  7. COMPLERA [Suspect]
     Active Substance: EMTRICITABINE\RILPIVIRINE HYDROCHLORIDE\TENOFOVIR DISOPROXIL FUMARATE
     Dosage: UNK
     Route: 048
     Dates: start: 2012
  8. COMPLERA [Suspect]
     Active Substance: EMTRICITABINE\RILPIVIRINE HYDROCHLORIDE\TENOFOVIR DISOPROXIL FUMARATE
     Dosage: UNK
     Route: 048
     Dates: start: 20140611, end: 20160316
  9. GENVOYA [Concomitant]
     Active Substance: COBICISTAT\ELVITEGRAVIR\EMTRICITABINE\TENOFOVIR ALAFENAMIDE FUMARATE
  10. VITAMIN D NOS [Concomitant]
     Active Substance: VITAMIN D NOS
  11. FERROUS GLUCONATE [Concomitant]
     Active Substance: FERROUS GLUCONATE
  12. CALCITRIOL [Concomitant]
     Active Substance: CALCITRIOL
  13. ERGOCALCIFEROL [Concomitant]
     Active Substance: ERGOCALCIFEROL
  14. ACETAMINOPHEN [Concomitant]
     Active Substance: ACETAMINOPHEN
  15. AMOXICILLIN [Concomitant]
     Active Substance: AMOXICILLIN
  16. BACTRIM [Concomitant]
     Active Substance: SULFAMETHOXAZOLE\TRIMETHOPRIM
  17. HEPARIN [Concomitant]
     Active Substance: HEPARIN SODIUM
  18. INTELENCE [Concomitant]
     Active Substance: ETRAVIRINE
  19. PREZCOBIX [Concomitant]
     Active Substance: COBICISTAT\DARUNAVIR ETHANOLATE
  20. TIVICAY [Concomitant]
     Active Substance: DOLUTEGRAVIR SODIUM
  21. TRIUMEQ [Concomitant]
     Active Substance: ABACAVIR SULFATE\DOLUTEGRAVIR SODIUM\LAMIVUDINE
  22. LAMIVUDINE [Concomitant]
     Active Substance: LAMIVUDINE
  23. ROBITUSSIN COLD [Concomitant]
     Indication: Nasopharyngitis
  24. PHENOL [Concomitant]
     Active Substance: PHENOL
     Indication: Oropharyngeal pain
  25. ALBUTEROL [Concomitant]
     Active Substance: ALBUTEROL
     Indication: Asthma
  26. VELPHORO [Concomitant]
     Active Substance: SUCROFERRIC OXYHYDROXIDE
  27. CEFUROXIME [Concomitant]
     Active Substance: CEFUROXIME
  28. CARVEDILOL [Concomitant]
     Active Substance: CARVEDILOL
  29. HYDROXYZINE HYDROCHLORIDE [Concomitant]
     Active Substance: HYDROXYZINE HYDROCHLORIDE
  30. HYDROCORTISONE [Concomitant]
     Active Substance: HYDROCORTISONE
  31. LIDOCAINE\PRILOCAINE [Concomitant]
     Active Substance: LIDOCAINE\PRILOCAINE
  32. FOSRENOL [Concomitant]
     Active Substance: LANTHANUM CARBONATE
  33. LORATADINE [Concomitant]
     Active Substance: LORATADINE
  34. OLMESARTAN MEDOXOMIL [Concomitant]
     Active Substance: OLMESARTAN MEDOXOMIL
  35. RENVELA [Concomitant]
     Active Substance: SEVELAMER CARBONATE
  36. TESSALON [Concomitant]
     Active Substance: BENZONATATE
  37. ALBUTEROL SULFATE [Concomitant]
     Active Substance: ALBUTEROL SULFATE
  38. METOPROLOL SUCCINATE [Concomitant]
     Active Substance: METOPROLOL SUCCINATE
     Indication: Blood pressure measurement
  39. SULFADIAZINE\TRIMETHOPRIM [Concomitant]
     Active Substance: SULFADIAZINE\TRIMETHOPRIM
  40. HYDROCHLOROTHIAZIDE [Concomitant]
     Active Substance: HYDROCHLOROTHIAZIDE
  41. CITALOPRAM [Concomitant]
     Active Substance: CITALOPRAM HYDROBROMIDE
  42. ACYCLOVIR SODIUM [Concomitant]
     Active Substance: ACYCLOVIR SODIUM
     Indication: Genital herpes
  43. PROMETHAZINE [Concomitant]
     Active Substance: PROMETHAZINE HYDROCHLORIDE
  44. LASIX [Concomitant]
     Active Substance: FUROSEMIDE

REACTIONS (14)
  - Death [Fatal]
  - End stage renal disease [Not Recovered/Not Resolved]
  - Chronic kidney disease [Recovered/Resolved]
  - Osteoporosis [Unknown]
  - Nephrogenic anaemia [Unknown]
  - Renal failure [Recovered/Resolved]
  - Skeletal injury [Unknown]
  - Emotional distress [Not Recovered/Not Resolved]
  - Loss of personal independence in daily activities [Unknown]
  - Anxiety [Not Recovered/Not Resolved]
  - Pain [Not Recovered/Not Resolved]
  - Glomerular filtration rate abnormal [Not Recovered/Not Resolved]
  - Depression [Not Recovered/Not Resolved]
  - Blood creatinine increased [Not Recovered/Not Resolved]

NARRATIVE: CASE EVENT DATE: 20140101
